FAERS Safety Report 5293499-2 (Version None)
Quarter: 2007Q2

REPORT INFORMATION
  Report Type: 
  Country: None (occurrence: None)
  Receive Date: 20070411
  Receipt Date: 20070405
  Transmission Date: 20071010
  Serious: Yes (Hospitalization)
  Sender: FDA-Public Use
  Company Number: US-GLAXOSMITHKLINE-A0646072A

PATIENT
  Age: 26 Year
  Sex: Male

DRUGS (1)
  1. ZANTAC [Suspect]
     Indication: DUODENAL ULCER
     Dosage: 150MG THREE TIMES PER DAY
     Route: 048
     Dates: start: 19820501, end: 20020101

REACTIONS (9)
  - AGGRESSION [None]
  - BIPOLAR DISORDER [None]
  - BIPOLAR I DISORDER [None]
  - DELUSION [None]
  - DEPRESSION [None]
  - HALLUCINATION, VISUAL [None]
  - INTENTIONAL SELF-INJURY [None]
  - RASH [None]
  - RESPIRATORY RATE INCREASED [None]
